FAERS Safety Report 25643692 (Version 1)
Quarter: 2025Q3

REPORT INFORMATION
  Report Type: Spontaneous
  Country: US (occurrence: US)
  Receive Date: 20250805
  Receipt Date: 20250805
  Transmission Date: 20251020
  Serious: No
  Sender: SUNOVION
  Company Number: US-SUMITOMO PHARMA SWITZERLAND GMBH-2025SPA009819

PATIENT
  Age: 71 Year
  Sex: Male

DRUGS (15)
  1. ORGOVYX [Suspect]
     Active Substance: RELUGOLIX
     Indication: Prostate cancer
     Route: 048
     Dates: start: 20250715, end: 20250715
  2. ORGOVYX [Suspect]
     Active Substance: RELUGOLIX
     Route: 048
  3. ASPIRIN [Concomitant]
     Active Substance: ASPIRIN
  4. ATORVASTATIN [Concomitant]
     Active Substance: ATORVASTATIN
  5. COENZYME Q10 [Concomitant]
     Active Substance: DIETARY SUPPLEMENT\UBIDECARENONE
  6. FLUOROURACIL [Concomitant]
     Active Substance: FLUOROURACIL
  7. LATANOPROST [Concomitant]
     Active Substance: LATANOPROST
     Route: 047
  8. LISINOPRIL [Concomitant]
     Active Substance: LISINOPRIL
  9. LORAZEPAM [Concomitant]
     Active Substance: LORAZEPAM
  10. VITAMINS [Concomitant]
     Active Substance: VITAMINS
  11. KONSYL FIBER [Concomitant]
     Active Substance: CALCIUM POLYCARBOPHIL
  12. ZOLPIDEM TARTRATE [Concomitant]
     Active Substance: ZOLPIDEM TARTRATE
  13. MENAQUINONE 6 [Concomitant]
     Active Substance: MENAQUINONE 6
  14. CALCIUM [Concomitant]
     Active Substance: CALCIUM
  15. HERBALS\PLANTAGO OVATA SEED COAT [Concomitant]
     Active Substance: HERBALS\PLANTAGO OVATA SEED COAT

REACTIONS (2)
  - Fatigue [Unknown]
  - Asthenia [Unknown]
